FAERS Safety Report 11906362 (Version 1)
Quarter: 2016Q1

REPORT INFORMATION
  Report Type: Spontaneous
  Country: US (occurrence: US)
  Receive Date: 20160111
  Receipt Date: 20160111
  Transmission Date: 20160526
  Serious: No
  Sender: FDA-Public Use
  Company Number: US-PFIZER INC-2015449221

PATIENT
  Age: 62 Year
  Sex: Male
  Weight: 95.25 kg

DRUGS (6)
  1. NEURONTIN [Suspect]
     Active Substance: GABAPENTIN
     Indication: TREMOR
     Dosage: 300 MG, UNK
  2. NEURONTIN [Suspect]
     Active Substance: GABAPENTIN
     Dosage: 600 MG, UNK
  3. NEURONTIN [Suspect]
     Active Substance: GABAPENTIN
     Dosage: 800 MG, 3X/DAY
  4. NEURONTIN [Suspect]
     Active Substance: GABAPENTIN
     Indication: TREMOR
     Dosage: 300 MG, UNK
  5. NEURONTIN [Suspect]
     Active Substance: GABAPENTIN
     Dosage: 600 MG, UNK
  6. NEURONTIN [Suspect]
     Active Substance: GABAPENTIN
     Dosage: 800 MG, 3X/DAY

REACTIONS (6)
  - Dysphagia [Unknown]
  - Throat irritation [Unknown]
  - Intentional product misuse [Unknown]
  - Drug ineffective for unapproved indication [Unknown]
  - Foreign body [Unknown]
  - Pharyngeal oedema [Unknown]
